FAERS Safety Report 12269574 (Version 1)
Quarter: 2016Q2

REPORT INFORMATION
  Report Type: Spontaneous
  Country: FI (occurrence: FI)
  Receive Date: 20160414
  Receipt Date: 20160414
  Transmission Date: 20160815
  Serious: Yes (Other)
  Sender: FDA-Public Use
  Company Number: FI-BAXALTA-2016BLT002271

PATIENT
  Sex: Male

DRUGS (2)
  1. HYQVIA [Suspect]
     Active Substance: HUMAN IMMUNOGLOBULIN G\HYALURONIDASE RECOMBINANT HUMAN
     Indication: PRODUCT USED FOR UNKNOWN INDICATION
     Dosage: 30 G, EVERY 4 WK
     Route: 065
     Dates: start: 20140917
  2. NANOGAM [Concomitant]
     Active Substance: HUMAN IMMUNOGLOBULIN G
     Indication: PRODUCT USED FOR UNKNOWN INDICATION

REACTIONS (12)
  - Oral mucosal exfoliation [Unknown]
  - Asthenia [Unknown]
  - Mastication disorder [Unknown]
  - Blood immunoglobulin G decreased [Unknown]
  - Night sweats [Unknown]
  - Weight decreased [Unknown]
  - Hyperhidrosis [Unknown]
  - Oral candidiasis [Unknown]
  - Feeling abnormal [Unknown]
  - Decreased appetite [Unknown]
  - Oral mucosal blistering [Unknown]
  - Pyrexia [Unknown]
